FAERS Safety Report 5096257-7 (Version None)
Quarter: 2006Q3

REPORT INFORMATION
  Report Type: 
  Country: None (occurrence: None)
  Receive Date: 20060905
  Receipt Date: 20060825
  Transmission Date: 20061208
  Serious: Yes (Other)
  Sender: FDA-Public Use
  Company Number: US-ROCHE-461115

PATIENT
  Sex: Female
  Weight: 54.4 kg

DRUGS (5)
  1. BONIVA [Suspect]
     Indication: OSTEOPOROSIS
     Route: 048
     Dates: start: 20060807
  2. CALCIUM GLUCONATE [Concomitant]
     Dosage: EVERY DAY
     Route: 048
  3. ADVAIR DISKUS 100/50 [Concomitant]
     Indication: ASTHMA
     Dosage: STRENGTH REPORTED AS 100/50/INHALATION
     Route: 055
  4. FLONASE [Concomitant]
     Dosage: NASAL SPRAY
     Route: 055
  5. CENTRUM [Concomitant]
     Dosage: EVERY DAY
     Route: 048

REACTIONS (1)
  - THYROID NEOPLASM [None]
